FAERS Safety Report 15764825 (Version 1)
Quarter: 2018Q4

REPORT INFORMATION
  Report Type: Spontaneous
  Country: DE (occurrence: DE)
  Receive Date: 20181227
  Receipt Date: 20181227
  Transmission Date: 20190205
  Serious: Yes (Death, Life-Threatening)
  Sender: FDA-Public Use
  Company Number: DE-BAYER-2018-241059

PATIENT
  Age: 81 Year
  Sex: Female

DRUGS (7)
  1. TICAGRELOR. [Suspect]
     Active Substance: TICAGRELOR
     Indication: ANTIPLATELET THERAPY
     Dosage: 180 MG, ONCE
     Route: 048
  2. ACETYLSALICYLIC ACID LYSINATE [Suspect]
     Active Substance: ASPIRIN DL-LYSINE
     Indication: PREMEDICATION
  3. ACETYLSALICYLIC ACID LYSINATE [Suspect]
     Active Substance: ASPIRIN DL-LYSINE
     Indication: ANTIPLATELET THERAPY
     Dosage: 250 MG, ONCE
     Route: 042
  4. TIROFIBAN [Suspect]
     Active Substance: TIROFIBAN
     Indication: ANTIPLATELET THERAPY
     Dosage: 25 ?G/KGKG IN 3 MINS
     Route: 040
  5. TIROFIBAN [Suspect]
     Active Substance: TIROFIBAN
     Indication: PREMEDICATION
     Dosage: 0,15 ?G/KGKG IN 18 HOURS
     Route: 040
  6. HEPARINA [HEPARIN] [Suspect]
     Active Substance: HEPARIN SODIUM
     Dosage: 7000 IU, ONCE
     Route: 042
  7. TICAGRELOR. [Suspect]
     Active Substance: TICAGRELOR
     Indication: PREMEDICATION

REACTIONS (7)
  - Hypovolaemic shock [Fatal]
  - Upper airway obstruction [None]
  - Cardiogenic shock [Fatal]
  - Oxygen saturation decreased [None]
  - Cardiac arrest [None]
  - Haematoma [None]
  - Dyspnoea [None]
